FAERS Safety Report 6363890-1 (Version None)
Quarter: 2009Q3

REPORT INFORMATION
  Report Type: 
  Country: None (occurrence: None)
  Receive Date: 20090919
  Receipt Date: 20090709
  Transmission Date: 20100115
  Serious: No
  Sender: FDA-Public Use
  Company Number: US-ABBOTT-09P-163-0584252-00

PATIENT
  Sex: Male

DRUGS (2)
  1. HUMIRA [Suspect]
     Indication: DRUG USE FOR UNKNOWN INDICATION
     Dosage: HUMIRA PEN
     Route: 058
     Dates: start: 20090101, end: 20090601
  2. HUMIRA [Suspect]
     Dosage: HUMIRA PRE-FILLED SYRINGE
     Route: 058
     Dates: start: 20090201

REACTIONS (3)
  - ARTHROPOD BITE [None]
  - FURUNCLE [None]
  - INFECTED BITES [None]
